FAERS Safety Report 5092856-7 (Version None)
Quarter: 2006Q3

REPORT INFORMATION
  Report Type: 
  Country: None (occurrence: None)
  Receive Date: 20060828
  Receipt Date: 20060818
  Transmission Date: 20061208
  Serious: Yes (Hospitalization)
  Sender: FDA-Public Use
  Company Number: 2006-BP-09641RO

PATIENT
  Age: 11 Year
  Sex: Male

DRUGS (2)
  1. CYCLOPHOSPHAMIDE [Suspect]
     Dosage: 250 MG BID (IN ERROR), PO
     Route: 048
     Dates: start: 20060601, end: 20060725
  2. CELLCEPT [Concomitant]

REACTIONS (7)
  - ALOPECIA [None]
  - DRUG DISPENSING ERROR [None]
  - HEADACHE [None]
  - MEDICATION ERROR [None]
  - NAIL DISORDER [None]
  - NEUTROPENIA [None]
  - VASCULITIS CEREBRAL [None]
